FAERS Safety Report 9468343 (Version 1)
Quarter: 2013Q3

REPORT INFORMATION
  Report Type: Spontaneous
  Country: JP (occurrence: None)
  Receive Date: 20130814
  Receipt Date: 20130814
  Transmission Date: 20140515
  Serious: Yes (Death)
  Sender: FDA-Public Use
  Company Number: TCI2013A04847

PATIENT
  Age: 78 Year
  Sex: Female

DRUGS (8)
  1. TAKEPRON OD TABLETS 15 (LANSOPRAZOLE) [Suspect]
     Indication: PROPHYLAXIS AGAINST GASTROINTESTINAL ULCER
     Dosage: 15 MG (15 MG, 1 IN 1 D)
     Route: 048
     Dates: start: 20111221
  2. ACTOS (PIOGLITAZONE HYDROCHLORIDE) [Concomitant]
  3. BLOPRESS (CANDESARTAN CILEXETIL) [Concomitant]
  4. BASSAMIN A81 [Concomitant]
  5. WARFARIN (WARFARIN POTASSIUM) [Concomitant]
  6. FUROSEMIDE [Concomitant]
  7. NICORANDIS (NICORANDIL) [Concomitant]
  8. NITRODERM TTS (GLYCERYL TRINITRATE) [Concomitant]

REACTIONS (1)
  - Death [None]
